FAERS Safety Report 4880330-X (Version None)
Quarter: 2006Q1

REPORT INFORMATION
  Report Type: 
  Country: None (occurrence: None)
  Receive Date: 20060111
  Receipt Date: 20060111
  Transmission Date: 20060701
  Serious: Yes (Hospitalization)
  Sender: FDA-Public Use
  Company Number: None

PATIENT
  Age: 29 Year
  Sex: Male
  Weight: 73.0291 kg

DRUGS (3)
  1. ZOSYN [Suspect]
     Indication: CONDITION AGGRAVATED
     Dosage: 3.375GM   Q6H    IV
     Route: 042
     Dates: start: 20050714, end: 20050801
  2. ZOSYN [Suspect]
     Indication: PSEUDOMONAS INFECTION
     Dosage: 3.375GM   Q6H    IV
     Route: 042
     Dates: start: 20050714, end: 20050801
  3. TOBRAMYCIN [Concomitant]

REACTIONS (4)
  - CHILLS [None]
  - LIVER FUNCTION TEST ABNORMAL [None]
  - NEUTROPENIA [None]
  - PYREXIA [None]
